FAERS Safety Report 8834743 (Version 1)
Quarter: 2012Q4

REPORT INFORMATION
  Report Type: Spontaneous
  Country: GB (occurrence: None)
  Receive Date: 20121009
  Receipt Date: 20121009
  Transmission Date: 20130627
  Serious: Yes (Life-Threatening, Other)
  Sender: FDA-Public Use
  Company Number: AUR-APL-2012-04243

PATIENT
  Age: 43 Year
  Sex: Female

DRUGS (7)
  1. LAMOTRIGINE (LAMOTRIGINE) [Suspect]
     Indication: EPILEPSY
     Route: 048
     Dates: start: 20120110, end: 20120907
  2. AMITRIPTYLINE (AMITRIPTYLINE) [Concomitant]
  3. BUSPIRONE (BUSPIRONE) [Concomitant]
  4. FLIXONASE (FLUTICASONE) [Concomitant]
  5. FOLIC ACID (FOLIC ACID) [Concomitant]
  6. OMEPRAZOLE (OMEPRAZOLE) [Concomitant]
  7. PROPRANOLOL (PROPRANOLOL) [Concomitant]

REACTIONS (2)
  - Thrombocytopenia [None]
  - Contusion [None]
